FAERS Safety Report 4534914-9 (Version None)
Quarter: 2004Q4

REPORT INFORMATION
  Report Type: 
  Country: None (occurrence: None)
  Receive Date: 20041222
  Receipt Date: 20040728
  Transmission Date: 20050328
  Serious: No
  Sender: FDA-Public Use
  Company Number: US-BRISTOL-MYERS SQUIBB COMPANY-12654265

PATIENT
  Age: 51 Year
  Sex: Female
  Weight: 127 kg

DRUGS (6)
  1. PRAVACHOL [Suspect]
     Indication: BLOOD CHOLESTEROL INCREASED
     Route: 048
     Dates: start: 20040608, end: 20040626
  2. COUMADIN [Concomitant]
  3. NEURONTIN [Concomitant]
  4. SYNTHROID [Concomitant]
  5. BECONASE [Concomitant]
  6. VICODIN [Concomitant]

REACTIONS (2)
  - MUSCLE CRAMP [None]
  - MUSCLE SPASMS [None]
